FAERS Safety Report 22626207 (Version 1)
Quarter: 2023Q2

REPORT INFORMATION
  Report Type: Spontaneous
  Country: US (occurrence: None)
  Receive Date: 20230620
  Receipt Date: 20230620
  Transmission Date: 20230722
  Serious: No
  Sender: FDA-Public Use
  Company Number: None

PATIENT
  Sex: Female
  Weight: 56.43 kg

DRUGS (2)
  1. SUTENT [Suspect]
     Active Substance: SUNITINIB MALATE
     Indication: Product used for unknown indication
     Route: 048
  2. QINLOCK [Suspect]
     Active Substance: RIPRETINIB
     Indication: Gastrointestinal stromal tumour
     Dosage: FREQUENCY : DAILY;?
     Route: 048
     Dates: start: 20230617

REACTIONS (14)
  - Frequent bowel movements [None]
  - Constipation [None]
  - Muscle spasms [None]
  - Pain in extremity [None]
  - Bone pain [None]
  - Arthralgia [None]
  - Supraventricular extrasystoles [None]
  - Abdominal distension [None]
  - Stomatitis [None]
  - Fatigue [None]
  - Peripheral swelling [None]
  - Ascites [None]
  - Gastrointestinal stromal tumour [None]
  - Condition aggravated [None]
